FAERS Safety Report 8519283-1 (Version None)
Quarter: 2012Q3

REPORT INFORMATION
  Report Type: 
  Country: None (occurrence: None)
  Receive Date: 20120718
  Receipt Date: 20120713
  Transmission Date: 20120928
  Serious: Yes (Hospitalization)
  Sender: FDA-Public Use
  Company Number: BR-ROCHE-1079759

PATIENT
  Sex: Female
  Weight: 87 kg

DRUGS (5)
  1. PANTOPRAZOLE [Concomitant]
  2. ACTEMRA [Suspect]
     Indication: RHEUMATOID ARTHRITIS
     Route: 042
     Dates: start: 20110525
  3. LOSARTAN POTASSIUM [Concomitant]
  4. CALCORT [Concomitant]
  5. LASIX [Concomitant]

REACTIONS (17)
  - DIABETES MELLITUS [None]
  - FATIGUE [None]
  - ARRHYTHMIA [None]
  - SWELLING [None]
  - GLUCOSE TOLERANCE IMPAIRED [None]
  - SPLEEN DISORDER [None]
  - TENDONITIS [None]
  - JOINT INJURY [None]
  - NAUSEA [None]
  - ASTHENIA [None]
  - MALAISE [None]
  - PAIN [None]
  - WEIGHT INCREASED [None]
  - LIVER DISORDER [None]
  - OSTEOARTHRITIS [None]
  - THYROID DISORDER [None]
  - FEELING ABNORMAL [None]
